FAERS Safety Report 6944420-X (Version None)
Quarter: 2010Q3

REPORT INFORMATION
  Report Type: 
  Country: None (occurrence: None)
  Receive Date: 20100827
  Receipt Date: 20100817
  Transmission Date: 20110219
  Serious: Yes (Other)
  Sender: FDA-Public Use
  Company Number: US-JNJFOC-20100807792

PATIENT
  Sex: Female
  Weight: 76.2 kg

DRUGS (9)
  1. FENTANYL CITRATE [Suspect]
     Indication: COMPLEX REGIONAL PAIN SYNDROME
     Route: 062
  2. FENTANYL CITRATE [Suspect]
     Route: 062
  3. ESTRACE [Concomitant]
     Indication: HORMONE REPLACEMENT THERAPY
     Route: 048
  4. DESERRIL [Concomitant]
     Indication: SLEEP DISORDER
     Route: 048
  5. VALIUM [Concomitant]
     Indication: STRESS
     Route: 048
  6. LANSOPRAZOLE [Concomitant]
     Indication: GASTRIC DISORDER
     Route: 048
  7. BUTALBITAL APAP [Concomitant]
     Indication: MIGRAINE
     Route: 048
  8. VOLTAREN [Concomitant]
     Indication: ARTHROPATHY
     Route: 048
  9. SOMA [Concomitant]
     Indication: MUSCLE RELAXANT THERAPY
     Route: 048

REACTIONS (6)
  - APPLICATION SITE RASH [None]
  - APPLICATION SITE SCAR [None]
  - DRUG INEFFECTIVE [None]
  - MALIGNANT MELANOMA [None]
  - PAIN [None]
  - PAPILLOMA [None]
